FAERS Safety Report 7510098-X (Version None)
Quarter: 2011Q2

REPORT INFORMATION
  Report Type: 
  Country: None (occurrence: None)
  Receive Date: 20110527
  Receipt Date: 20110516
  Transmission Date: 20111010
  Serious: Yes (Hospitalization, Disabling)
  Sender: FDA-Public Use
  Company Number: FR-JNJFOC-20110302793

PATIENT
  Age: 18 Year
  Sex: Female

DRUGS (2)
  1. AZATHIOPRINE [Concomitant]
  2. REMICADE [Suspect]
     Indication: CROHN'S DISEASE
     Route: 042
     Dates: start: 20070302, end: 20090201

REACTIONS (1)
  - ARTHRITIS [None]
